FAERS Safety Report 5216154-3 (Version None)
Quarter: 2006Q4

REPORT INFORMATION
  Report Type: 
  Country: None (occurrence: None)
  Receive Date: 20061122
  Receipt Date: 20060622
  Transmission Date: 20070319
  Serious: Yes (Other)
  Sender: FDA-Public Use
  Company Number: 2006079566

PATIENT
  Age: 44 Year
  Sex: Male
  Weight: 99.7913 kg

DRUGS (2)
  1. LIPITOR [Suspect]
     Indication: BLOOD CHOLESTEROL INCREASED
     Dosage: 10 MG (10 MG, 1 IN 1 D), ORAL
     Route: 048
     Dates: start: 20021022
  2. DILANTIN [Concomitant]

REACTIONS (6)
  - BACK PAIN [None]
  - HAEMATURIA [None]
  - MICTURITION URGENCY [None]
  - PROSTATIC DISORDER [None]
  - URETHRAL DISORDER [None]
  - URINARY TRACT INFECTION [None]
